FAERS Safety Report 9786760 (Version 5)
Quarter: 2014Q1

REPORT INFORMATION
  Report Type: Spontaneous
  Country: JP (occurrence: JP)
  Receive Date: 20131227
  Receipt Date: 20140320
  Transmission Date: 20141002
  Serious: Yes (Hospitalization)
  Sender: FDA-Public Use
  Company Number: JP-TAKEDA-2013TUS001798

PATIENT
  Sex: 0

DRUGS (17)
  1. FEBURIC [Suspect]
     Indication: HYPERURICAEMIA
     Dosage: 10 MG, QD
     Route: 048
     Dates: start: 20130725, end: 20130807
  2. FEBURIC [Suspect]
     Dosage: 20 MG, QD
     Route: 048
     Dates: start: 20130808, end: 20130920
  3. NEXIUM /01479302/ [Suspect]
     Indication: PROPHYLAXIS AGAINST GASTROINTESTINAL ULCER
     Dosage: 20 MG, QD
     Route: 048
     Dates: start: 20130809, end: 20130919
  4. BAKTAR [Suspect]
     Indication: PNEUMOCYSTIS JIROVECII PNEUMONIA
     Dosage: 1 DF ALTERNATE-DAY ADMINISTRATION
     Route: 048
     Dates: start: 20130808, end: 20130920
  5. BONALON [Concomitant]
     Indication: OSTEOPOROSIS PROPHYLAXIS
     Dosage: 35 MG/ WEEK
     Route: 048
     Dates: start: 20130810
  6. SODIUM BICARBONATE [Concomitant]
     Indication: ACIDOSIS
     Dosage: 1.0 G, QD
     Route: 048
     Dates: start: 20130725
  7. MUCOSTA [Concomitant]
     Indication: PROPHYLAXIS AGAINST GASTROINTESTINAL ULCER
     Dosage: 300 MG, QD
     Route: 048
     Dates: start: 20130808
  8. COMELIAN [Concomitant]
     Indication: PROTEINURIA
     Dosage: 300 MG, QD
     Route: 048
     Dates: start: 20130808
  9. PREDONINE                          /00016201/ [Concomitant]
     Indication: GLOMERULONEPHRITIS RAPIDLY PROGRESSIVE
     Dosage: 30 MG, QD
     Route: 048
     Dates: start: 20130808, end: 20130905
  10. PREDONINE                          /00016201/ [Concomitant]
     Dosage: 25 MG, QD
     Dates: start: 20130906, end: 20130921
  11. PREDONINE                          /00016201/ [Concomitant]
     Dosage: 20 MG, QD
     Dates: start: 20130922, end: 20131017
  12. PREDONINE                          /00016201/ [Concomitant]
     Dosage: 15 MG, QD
     Dates: start: 20131018
  13. ALFAROL [Concomitant]
     Indication: OSTEOPOROSIS PROPHYLAXIS
     Dosage: 0.25 ?G, QD
     Route: 048
     Dates: start: 20130906
  14. KAYEXALATE [Concomitant]
     Indication: HYPERTENSION
     Dosage: 2 DF, QD
     Route: 048
     Dates: start: 20130905, end: 20130920
  15. MIRCERA [Concomitant]
     Indication: NEPHROGENIC ANAEMIA
     Dosage: UNK
     Route: 058
     Dates: start: 20130718, end: 20130718
  16. NESP [Concomitant]
     Indication: NEPHROGENIC ANAEMIA
     Dosage: 30 ?G, 2/WEEK
     Route: 058
     Dates: start: 20130724
  17. ARGAMATE [Concomitant]
     Indication: HYPERKALAEMIA
     Dosage: 2 DF, QD
     Route: 048
     Dates: start: 20130718, end: 20130919

REACTIONS (2)
  - Bacteraemia [Recovered/Resolved]
  - Neutropenia [Recovered/Resolved]
